FAERS Safety Report 10985996 (Version 1)
Quarter: 2015Q1

REPORT INFORMATION
  Report Type: Spontaneous
  Country: US (occurrence: None)
  Receive Date: 20150313
  Receipt Date: 20150313
  Transmission Date: 20150721
  Serious: Yes (Other)
  Sender: FDA-Public Use
  Company Number: 1346685

PATIENT
  Age: 65 Year
  Sex: Male

DRUGS (16)
  1. ATROVENT (IPRATROPIUM BROMIDE) (SPRAY) [Concomitant]
  2. TESSALON [Concomitant]
     Active Substance: BENZONATATE
  3. PROAIR (UNITED STATES) (SALBUTAMOL SULFATE) [Concomitant]
  4. FLOVENT HFA (FLUTICASONE PROPIONATE) [Concomitant]
  5. TAMSULOSIN [Concomitant]
     Active Substance: TAMSULOSIN
  6. CICLOPIROX. [Concomitant]
     Active Substance: CICLOPIROX
  7. PANTOPAZOLE [Concomitant]
  8. NASALCROM (SODIUM CROMOGLYCATE) (PER ACCUATION) [Concomitant]
  9. CLARITIN [Concomitant]
     Active Substance: LORATADINE
  10. DIOVAN [Concomitant]
     Active Substance: VALSARTAN
  11. ASTELIN NASAL SPRAY (AZELASTINE HYDROCHLORIDE) [Concomitant]
  12. SPIRIVA (TIOTROPIUM BROMIDE) [Concomitant]
  13. XOLAIR [Suspect]
     Active Substance: OMALIZUMAB
     Indication: ASTHMA
     Route: 058
     Dates: start: 20131030
  14. TRIAMCINOLONE CREAM [Concomitant]
  15. SINGULAIR (MONTELUKAST SODIUM) [Concomitant]
  16. EPIPEN [Concomitant]
     Active Substance: EPINEPHRINE

REACTIONS (1)
  - Rash [None]

NARRATIVE: CASE EVENT DATE: 20140108
